FAERS Safety Report 16375357 (Version 1)
Quarter: 2019Q2

REPORT INFORMATION
  Report Type: Spontaneous
  Country: US (occurrence: US)
  Receive Date: 20190531
  Receipt Date: 20190531
  Transmission Date: 20190711
  Serious: No
  Sender: FDA-Public Use
  Company Number: US-FDC LIMITED-2067629

PATIENT
  Age: 80 Year
  Sex: Female

DRUGS (3)
  1. EDARBI (AZILSARTAN) [Concomitant]
  2. ERYTHROMYCIN. [Concomitant]
     Active Substance: ERYTHROMYCIN
     Route: 047
     Dates: start: 20190514
  3. CIPROFLOXACIN. [Suspect]
     Active Substance: CIPROFLOXACIN
     Indication: CONJUNCTIVITIS
     Route: 047
     Dates: start: 20190514, end: 201905

REACTIONS (3)
  - Foreign body sensation in eyes [Recovered/Resolved]
  - Eye pruritus [Recovered/Resolved]
  - Deposit eye [Recovered/Resolved]
